FAERS Safety Report 24180169 (Version 1)
Quarter: 2024Q3

REPORT INFORMATION
  Report Type: Spontaneous
  Country: MX (occurrence: None)
  Receive Date: 20240806
  Receipt Date: 20240806
  Transmission Date: 20241016
  Serious: Yes (Other)
  Sender: ASTRAZENECA
  Company Number: 2024A173605

PATIENT
  Age: 45 Month
  Sex: Male
  Weight: 23 kg

DRUGS (3)
  1. BUDESONIDE\FORMOTEROL FUMARATE DIHYDRATE [Suspect]
     Active Substance: BUDESONIDE\FORMOTEROL FUMARATE DIHYDRATE
     Indication: Rhinitis allergic
     Dosage: 2 DF UNKNOWN
     Route: 055
     Dates: start: 202402
  2. ALBUTEROL [Concomitant]
     Active Substance: ALBUTEROL
     Indication: Rhinitis allergic
  3. MOTRIN [Concomitant]
     Active Substance: IBUPROFEN
     Indication: Pyrexia

REACTIONS (3)
  - Pneumonitis [Unknown]
  - Wheezing [Unknown]
  - Off label use [Unknown]

NARRATIVE: CASE EVENT DATE: 20240201
